FAERS Safety Report 18701482 (Version 1)
Quarter: 2021Q1

REPORT INFORMATION
  Report Type: Spontaneous
  Country: BE (occurrence: BE)
  Receive Date: 20210105
  Receipt Date: 20210105
  Transmission Date: 20210419
  Serious: Yes (Other)
  Sender: FDA-Public Use
  Company Number: BE-NEOS THERAPEUTICS, LP-2020NEO00057

PATIENT
  Age: 12 Year
  Sex: Male

DRUGS (6)
  1. AMOXICILLIN/CLAVULANIC ACID [Concomitant]
     Active Substance: AMOXICILLIN\CLAVULANIC ACID
     Route: 065
  2. METHYLPHENIDATE. [Suspect]
     Active Substance: METHYLPHENIDATE
     Dosage: 20 MG, 1X/DAY, MODIFIED RELEASE
     Route: 065
  3. METHYLPHENIDATE. [Suspect]
     Active Substance: METHYLPHENIDATE
     Indication: ATTENTION DEFICIT HYPERACTIVITY DISORDER
     Dosage: 10 MG, 2X/DAY
     Route: 065
  4. CODEINE [Concomitant]
     Active Substance: CODEINE
     Route: 048
  5. METHYLPHENIDATE. [Suspect]
     Active Substance: METHYLPHENIDATE
     Dosage: 20 MG, 1X/DAY, RESTARTED BY PSYCHIATRIST
     Route: 065
  6. METHYLPHENIDATE. [Suspect]
     Active Substance: METHYLPHENIDATE
     Dosage: 10 MG, 2X/DAY (3 DAYS PER WEEK) ALONG WITH MODIFIED RELEASE 20 MG THE OTHER 4 DAYS
     Route: 065

REACTIONS (1)
  - Alice in wonderland syndrome [Recovered/Resolved]
